FAERS Safety Report 4315244-7 (Version None)
Quarter: 2004Q1

REPORT INFORMATION
  Report Type: 
  Country: None (occurrence: None)
  Receive Date: 20040309
  Receipt Date: 20040227
  Transmission Date: 20041129
  Serious: Yes (Death, Life-Threatening)
  Sender: FDA-Public Use
  Company Number: GB-JNJFOC-20040300011

PATIENT
  Age: 66 Year
  Sex: Female

DRUGS (6)
  1. REMICADE [Suspect]
     Indication: RHEUMATOID ARTHRITIS
     Dosage: 200 MG, INTRAVENOUS
     Route: 042
     Dates: start: 20030218
  2. PREDNISOLONE [Concomitant]
  3. FOLIC ACID [Concomitant]
  4. CALCICHEW (CALCIUM CARBONATE) [Concomitant]
  5. LANSOPRAZOLE [Concomitant]
  6. CO-PROXAMOL (APOREX) [Concomitant]

REACTIONS (1)
  - DEATH [None]
